FAERS Safety Report 6152053-0 (Version None)
Quarter: 2009Q2

REPORT INFORMATION
  Report Type: 
  Country: None (occurrence: None)
  Receive Date: 20090410
  Receipt Date: 20090408
  Transmission Date: 20091009
  Serious: Yes (Death, Other)
  Sender: FDA-Public Use
  Company Number: JP-B.I. PHARMACEUTICALS,INC./RIDGEFIELD-2009-BP-04471YA

PATIENT
  Sex: Male
  Weight: 56.9 kg

DRUGS (3)
  1. HARNAL (TAMSULOSIN) ORODISPERSABLE CR [Suspect]
     Indication: BENIGN PROSTATIC HYPERPLASIA
     Dosage: .2MG
     Route: 048
     Dates: start: 20081022, end: 20090407
  2. SOLIFENACIN [Suspect]
     Indication: HYPERTONIC BLADDER
     Route: 048
     Dates: start: 20090108, end: 20090407
  3. NSAID'S [Concomitant]
     Route: 048
     Dates: start: 20090323

REACTIONS (2)
  - DEATH [None]
  - INTERVERTEBRAL DISC PROTRUSION [None]
